FAERS Safety Report 8602316-1 (Version None)
Quarter: 2012Q2

REPORT INFORMATION
  Report Type: 
  Country: None (occurrence: None)
  Receive Date: 20120423
  Receipt Date: 20080731
  Transmission Date: 20120825
  Serious: Yes (Other)
  Sender: FDA-Public Use
  Company Number: PHEH2008US06818

PATIENT
  Age: 91 Year
  Sex: Female

DRUGS (4)
  1. NEXIUM [Concomitant]
  2. FEMARA [Suspect]
     Dosage: 2.5 MG, QD, ORAL
     Route: 048
     Dates: start: 20030101
  3. OCUVITE (ASCORBIC ACID, RETINOL, TOCOPHEROL) [Concomitant]
  4. VITAMIN TAB [Concomitant]

REACTIONS (4)
  - HYPOAESTHESIA [None]
  - WEIGHT DECREASED [None]
  - ARTHRALGIA [None]
  - SPINAL OSTEOARTHRITIS [None]
